FAERS Safety Report 14348222 (Version 2)
Quarter: 2018Q1

REPORT INFORMATION
  Report Type: Report from Study
  Country: CA (occurrence: CA)
  Receive Date: 20180103
  Receipt Date: 20180112
  Transmission Date: 20180509
  Serious: Yes (Other)
  Sender: FDA-Public Use
  Company Number: CA-GLAXOSMITHKLINE-CA2017GSK202468

PATIENT
  Age: 45 Year
  Sex: Female

DRUGS (7)
  1. REMICADE [Concomitant]
     Active Substance: INFLIXIMAB
     Dosage: UNK
     Dates: start: 201506, end: 201606
  2. DICLOFENAC SODIUM. [Suspect]
     Active Substance: DICLOFENAC SODIUM
     Indication: PRODUCT USED FOR UNKNOWN INDICATION
     Dosage: 1 DF (50 MG), BID
     Route: 048
     Dates: start: 2016
  3. COSENTYX [Suspect]
     Active Substance: SECUKINUMAB
     Dosage: UNK
     Route: 058
     Dates: start: 20171221
  4. COSENTYX [Suspect]
     Active Substance: SECUKINUMAB
     Indication: ANKYLOSING SPONDYLITIS
     Dosage: 150 MG, WE
     Route: 058
     Dates: start: 20171214
  5. COSENTYX [Suspect]
     Active Substance: SECUKINUMAB
     Dosage: UNK
     Route: 058
     Dates: start: 20171228
  6. NAPROXEN. [Concomitant]
     Active Substance: NAPROXEN
     Dosage: 500 MG, UNK
     Dates: start: 2014, end: 2016
  7. ORENCIA [Concomitant]
     Active Substance: ABATACEPT
     Dosage: 125 MG, UNK
     Dates: start: 201608, end: 20171124

REACTIONS (7)
  - Renal pain [Unknown]
  - Insomnia [Unknown]
  - Chest pain [Not Recovered/Not Resolved]
  - Malaise [Unknown]
  - Pain [Unknown]
  - Chest discomfort [Unknown]
  - Renal impairment [Unknown]

NARRATIVE: CASE EVENT DATE: 20171225
